FAERS Safety Report 7824665-7 (Version None)
Quarter: 2011Q4

REPORT INFORMATION
  Report Type: 
  Country: None (occurrence: None)
  Receive Date: 20111019
  Receipt Date: 20111010
  Transmission Date: 20120403
  Serious: Yes (Other)
  Sender: FDA-Public Use
  Company Number: PHEH2011US06469

PATIENT
  Sex: Female

DRUGS (12)
  1. GLIPIZIDE [Concomitant]
     Dosage: 4 MG, 1 X DAY
  2. CEPHALEXIN [Suspect]
     Indication: BURNING SENSATION
     Dosage: 500 MG, 2X DAY
  3. GLUMETZA [Concomitant]
     Dosage: 100 MG, 2 X DAY
  4. SYNTHROID [Concomitant]
     Dosage: 75 UG, 1 X DAY
  5. RAMIPRIL [Concomitant]
     Dosage: 10 MG 1 X DAY
  6. DIOVAN [Concomitant]
     Dosage: 320 MG, 1 X DAY
  7. RECLAST [Suspect]
     Dosage: 5 MG,
     Route: 042
     Dates: start: 20111003
  8. ASPIRIN [Suspect]
     Indication: PAIN
     Dosage: 81 MG, 2 X DAY
  9. TOPROL-XL [Concomitant]
     Dosage: 100 MG, 1 X DAY
  10. LANTUS [Concomitant]
     Dosage: 55 IU, 1 X DAY
  11. VICTOZA [Concomitant]
     Dosage: 1.8 UNITS
     Route: 042
  12. ACTOS [Concomitant]
     Dosage: 45 MG, 1 X DAY

REACTIONS (16)
  - BURNING SENSATION [None]
  - VOMITING [None]
  - DIARRHOEA [None]
  - CHILLS [None]
  - PAIN [None]
  - INFLUENZA LIKE ILLNESS [None]
  - ARTHRALGIA [None]
  - BLOOD CALCIUM DECREASED [None]
  - HEADACHE [None]
  - ERYTHEMA [None]
  - NEPHROPATHY [None]
  - DECREASED APPETITE [None]
  - MUSCLE SPASMS [None]
  - FATIGUE [None]
  - PAIN IN EXTREMITY [None]
  - TREMOR [None]
